FAERS Safety Report 5509734-9 (Version None)
Quarter: 2007Q4

REPORT INFORMATION
  Report Type: 
  Country: None (occurrence: None)
  Receive Date: 20071108
  Receipt Date: 20071105
  Transmission Date: 20080405
  Serious: Yes (Hospitalization, Other)
  Sender: FDA-Public Use
  Company Number: GB-WYE-G00562907

PATIENT
  Age: 62 Year
  Sex: Male
  Weight: 85 kg

DRUGS (8)
  1. IBUPROFEN [Suspect]
     Indication: BACK PAIN
     Dosage: UNKNOWN
     Route: 048
     Dates: start: 20070501, end: 20070603
  2. ATORVASTATIN CALCIUM [Concomitant]
     Route: 048
  3. LEVOTHYROXINE SODIUM [Concomitant]
     Route: 048
  4. HYDROXYCARBAMIDE [Concomitant]
     Indication: MYELOFIBROSIS
  5. METFORMIN HCL [Concomitant]
     Route: 048
  6. TAMSULOSIN HCL [Concomitant]
     Indication: PROSTATIC DISORDER
  7. ACETYLSALICYLIC ACID SRT [Concomitant]
     Route: 048
  8. FELODIPINE [Concomitant]
     Indication: HYPERTENSION

REACTIONS (3)
  - LEUKOCYTOSIS [None]
  - MENINGITIS [None]
  - PROTEIN TOTAL INCREASED [None]
